FAERS Safety Report 11152888 (Version 2)
Quarter: 2015Q2

REPORT INFORMATION
  Report Type: Spontaneous
  Country: US (occurrence: US)
  Receive Date: 20150601
  Receipt Date: 20150626
  Transmission Date: 20150821
  Serious: No
  Sender: FDA-Public Use
  Company Number: US-ASTRAZENECA-2015SE50775

PATIENT
  Sex: Male
  Weight: 111.1 kg

DRUGS (15)
  1. LASIX [Concomitant]
     Active Substance: FUROSEMIDE
     Indication: FLUID RETENTION
     Dosage: EVERY OTHER DAY
  2. LEUPROLIDE [Concomitant]
     Active Substance: LEUPROLIDE
     Indication: PROSTATE CANCER
  3. BYTURON [Concomitant]
     Dosage: DAILY
  4. METROPROLOL [Concomitant]
     Active Substance: METOPROLOL
  5. GLUCOSAMINE [Concomitant]
     Active Substance: GLUCOSAMINE
     Indication: ARTHROPATHY
  6. TRICOR [Concomitant]
     Active Substance: FENOFIBRATE
  7. CALCIUM [Concomitant]
     Active Substance: CALCIUM
     Indication: PROSTATE CANCER
  8. CALCIUM [Concomitant]
     Active Substance: CALCIUM
     Indication: PROSTATE CANCER
  9. DILTIAZEM [Concomitant]
     Active Substance: DILTIAZEM
     Indication: CARDIAC DISORDER
  10. HUMALOG [Concomitant]
     Active Substance: INSULIN LISPRO
     Dosage: 75/25 SLIDING SCALE, AS REQUIRED
  11. PROTONIX [Concomitant]
     Active Substance: PANTOPRAZOLE SODIUM
     Indication: ULCER HAEMORRHAGE
  12. VITAMIN D [Concomitant]
     Active Substance: CHOLECALCIFEROL
     Dosage: 5000, EVERY DAY
  13. BYDUREON [Suspect]
     Active Substance: EXENATIDE
     Indication: TYPE 2 DIABETES MELLITUS
     Route: 058
     Dates: start: 20150506
  14. VITAMIN B [Concomitant]
     Active Substance: VITAMIN B
  15. FISH OIL [Concomitant]
     Active Substance: FISH OIL

REACTIONS (5)
  - Product quality issue [Unknown]
  - Intentional product misuse [Unknown]
  - Underdose [Unknown]
  - Blood glucose increased [Unknown]
  - Injection site extravasation [Unknown]

NARRATIVE: CASE EVENT DATE: 201505
